FAERS Safety Report 15276782 (Version 1)
Quarter: 2018Q3

REPORT INFORMATION
  Report Type: Spontaneous
  Country: US (occurrence: US)
  Receive Date: 20180729
  Receipt Date: 20180729
  Transmission Date: 20181010
  Serious: Yes (Hospitalization, Other)
  Sender: FDA-Public Use
  Company Number: None

PATIENT
  Age: 31 Year
  Sex: Female
  Weight: 48.15 kg

DRUGS (1)
  1. TAMIFLU [Suspect]
     Active Substance: OSELTAMIVIR PHOSPHATE
     Indication: INFLUENZA
     Dosage: ?          QUANTITY:6 CAPSULE(S);?
     Route: 048
     Dates: start: 20180329, end: 20180404

REACTIONS (5)
  - Delusion [None]
  - Mental disorder [None]
  - Abnormal behaviour [None]
  - Impaired work ability [None]
  - Delirium [None]

NARRATIVE: CASE EVENT DATE: 20180329
